FAERS Safety Report 8354125-9 (Version None)
Quarter: 2012Q2

REPORT INFORMATION
  Report Type: 
  Country: None (occurrence: None)
  Receive Date: 20120511
  Receipt Date: 20120509
  Transmission Date: 20120825
  Serious: Yes (Disabling)
  Sender: FDA-Public Use
  Company Number: PHEH2012US007482

PATIENT
  Sex: Female
  Weight: 52 kg

DRUGS (4)
  1. RECLAST [Suspect]
     Indication: OSTEOPOROSIS
     Dosage: UNK UKN, UNK
     Route: 042
     Dates: start: 20100901
  2. PNEUMOCOCCAL VACCINE [Concomitant]
     Dosage: UNK UKN, UNK
     Route: 042
     Dates: start: 20060101
  3. COZAAR [Concomitant]
  4. HYZAAR [Concomitant]
     Dosage: UNK UKN, UNK
     Route: 048
     Dates: start: 20010101

REACTIONS (9)
  - ARTHRALGIA [None]
  - ARTHROPATHY [None]
  - JOINT CREPITATION [None]
  - FALL [None]
  - PAIN IN EXTREMITY [None]
  - HUMERUS FRACTURE [None]
  - JOINT RANGE OF MOTION DECREASED [None]
  - OEDEMA PERIPHERAL [None]
  - SOFT TISSUE INJURY [None]
